FAERS Safety Report 6666754-9 (Version None)
Quarter: 2010Q2

REPORT INFORMATION
  Report Type: 
  Country: None (occurrence: None)
  Receive Date: 20100401
  Receipt Date: 20100401
  Transmission Date: 20101027
  Serious: No
  Sender: FDA-Public Use
  Company Number: None

PATIENT
  Sex: Female
  Weight: 59.4212 kg

DRUGS (1)
  1. SRONYX .1 MG LEVONORGESTREL .02 MG ETHINYL ESTRADIOL  WATSON PHARMA [Suspect]
     Indication: PREGNANCY
     Dosage: 1 TABLET DAILY SAME TIME ORAL
     Route: 048
     Dates: start: 20090122, end: 20091201

REACTIONS (1)
  - URINE HUMAN CHORIONIC GONADOTROPIN POSITIVE [None]
